FAERS Safety Report 9358795 (Version 1)
Quarter: 2013Q2

REPORT INFORMATION
  Report Type: Spontaneous
  Country: US (occurrence: US)
  Receive Date: 20130620
  Receipt Date: 20130620
  Transmission Date: 20140414
  Serious: Yes (Hospitalization)
  Sender: FDA-Public Use
  Company Number: US-BAYER-2013-073686

PATIENT
  Age: 19 Year
  Sex: Female
  Weight: 104.31 kg

DRUGS (2)
  1. YASMIN [Suspect]
  2. COMPRO [Concomitant]
     Dosage: 25 MG, UNK
     Dates: start: 20030305

REACTIONS (2)
  - Biliary dyskinesia [None]
  - Pulmonary embolism [Recovered/Resolved]
